FAERS Safety Report 9689236 (Version 2)
Quarter: 2013Q4

REPORT INFORMATION
  Report Type: Spontaneous
  Country: US (occurrence: US)
  Receive Date: 20131114
  Receipt Date: 20131114
  Transmission Date: 20140711
  Serious: Yes (Other)
  Sender: FDA-Public Use
  Company Number: US-IPSEN BIOPHARMACEUTICALS, INC.-2012-0087

PATIENT
  Age: 45 Year
  Sex: Female
  Weight: 46 kg

DRUGS (5)
  1. DYSPORT [Suspect]
     Indication: SKIN WRINKLING
     Dosage: 75 UNITS
     Route: 065
     Dates: start: 20110829, end: 20110829
  2. DYSPORT [Suspect]
     Indication: SKIN WRINKLING
     Dosage: 75 UNITS
     Route: 065
     Dates: start: 20110830, end: 20110830
  3. DYSPORT [Suspect]
     Indication: OFF LABEL USE
  4. TEMAZEPAM [Concomitant]
     Indication: OFF LABEL USE
     Dosage: NOT REPORTED
     Route: 065
  5. HYDROXYZINE [Concomitant]
     Indication: OFF LABEL USE
     Dosage: NOT REPORTED
     Route: 065

REACTIONS (17)
  - Suicidal ideation [Not Recovered/Not Resolved]
  - Depression [Recovered/Resolved]
  - Anxiety [Recovering/Resolving]
  - Swelling face [Unknown]
  - Laceration [Not Recovered/Not Resolved]
  - Face injury [Not Recovered/Not Resolved]
  - Muscle disorder [Not Recovered/Not Resolved]
  - Malaise [Unknown]
  - Muscular weakness [Unknown]
  - Arthralgia [Unknown]
  - Influenza like illness [Unknown]
  - Facial paresis [Unknown]
  - Muscular weakness [Unknown]
  - Headache [Not Recovered/Not Resolved]
  - Drug ineffective [Unknown]
  - Inappropriate schedule of drug administration [Unknown]
  - Overdose [Unknown]
